FAERS Safety Report 7915994-7 (Version None)
Quarter: 2011Q4

REPORT INFORMATION
  Report Type: 
  Country: None (occurrence: None)
  Receive Date: 20111115
  Receipt Date: 20111107
  Transmission Date: 20120403
  Serious: Yes (Other)
  Sender: FDA-Public Use
  Company Number: CA-ASTRAZENECA-2011SE67197

PATIENT
  Age: 59 Year
  Sex: Female

DRUGS (2)
  1. HYZAAR [Suspect]
     Route: 065
  2. CRESTOR [Suspect]
     Route: 048

REACTIONS (3)
  - STRESS [None]
  - ARTERIOSCLEROSIS [None]
  - BLOOD PRESSURE INCREASED [None]
